FAERS Safety Report 11118766 (Version 2)
Quarter: 2015Q4

REPORT INFORMATION
  Report Type: Spontaneous
  Country: US (occurrence: US)
  Receive Date: 20150518
  Receipt Date: 20151016
  Transmission Date: 20160304
  Serious: No
  Sender: FDA-Public Use
  Company Number: US-LUNDBECK-DKLU1111084

PATIENT
  Age: 17 Year
  Sex: Female
  Weight: 93 kg

DRUGS (10)
  1. VISKEN [Concomitant]
     Active Substance: PINDOLOL
     Indication: POSTURAL ORTHOSTATIC TACHYCARDIA SYNDROME
  2. LEXAPRO [Concomitant]
     Active Substance: ESCITALOPRAM OXALATE
     Indication: HEADACHE
     Route: 048
  3. NORTHERA [Suspect]
     Active Substance: DROXIDOPA
     Indication: POSTURAL ORTHOSTATIC TACHYCARDIA SYNDROME
     Route: 048
     Dates: end: 20150324
  4. VISKEN [Concomitant]
     Active Substance: PINDOLOL
     Indication: ORTHOSTATIC HYPOTENSION
     Route: 048
  5. VISKEN [Concomitant]
     Active Substance: PINDOLOL
     Indication: ATRIOVENTRICULAR BLOCK FIRST DEGREE
  6. FLORINEF ACETATE [Concomitant]
     Active Substance: FLUDROCORTISONE ACETATE
     Route: 048
  7. NORTHERA [Suspect]
     Active Substance: DROXIDOPA
     Indication: ORTHOSTATIC HYPOTENSION
     Route: 048
  8. NORTHERA [Suspect]
     Active Substance: DROXIDOPA
     Indication: ATRIOVENTRICULAR BLOCK FIRST DEGREE
     Route: 048
     Dates: start: 201502
  9. DEPAKOTE [Concomitant]
     Active Substance: DIVALPROEX SODIUM
     Indication: HEADACHE
     Route: 048
  10. FLORINEF ACETATE [Concomitant]
     Active Substance: FLUDROCORTISONE ACETATE
     Indication: PRODUCT USED FOR UNKNOWN INDICATION
     Route: 048

REACTIONS (2)
  - Drug ineffective [Unknown]
  - Postural orthostatic tachycardia syndrome [Recovering/Resolving]

NARRATIVE: CASE EVENT DATE: 20150317
